FAERS Safety Report 5605272-3 (Version None)
Quarter: 2008Q1

REPORT INFORMATION
  Report Type: 
  Country: None (occurrence: None)
  Receive Date: 20080129
  Receipt Date: 20080122
  Transmission Date: 20080703
  Serious: Yes (Hospitalization)
  Sender: FDA-Public Use
  Company Number: JP-SP-2008-00224

PATIENT
  Age: 81 Year
  Sex: Male

DRUGS (1)
  1. IMMUCYST [Suspect]
     Indication: BLADDER CANCER
     Route: 043

REACTIONS (2)
  - INCORRECT DRUG DOSAGE FORM ADMINISTERED [None]
  - INTERSTITIAL LUNG DISEASE [None]
